FAERS Safety Report 5214021-2 (Version None)
Quarter: 2007Q1

REPORT INFORMATION
  Report Type: 
  Country: None (occurrence: None)
  Receive Date: 20070122
  Receipt Date: 20070115
  Transmission Date: 20070707
  Serious: Yes (Hospitalization, Other)
  Sender: FDA-Public Use
  Company Number: FR-ELI_LILLY_AND_COMPANY-FR200701002666

PATIENT
  Age: 49 Year
  Sex: Male

DRUGS (9)
  1. ZYPREXA [Suspect]
     Indication: MENTAL DISORDER
     Dosage: 10 MG, DAILY (1/D)
     Route: 048
     Dates: start: 20040528, end: 20041005
  2. ZYPREXA [Suspect]
     Dosage: 5 MG, DAILY (1/D)
     Route: 048
     Dates: start: 20041006
  3. IXEL [Concomitant]
     Indication: MENTAL DISORDER
     Dosage: 100 MG, DAILY (1/D)
     Route: 048
     Dates: start: 20050610, end: 20050712
  4. IXEL [Concomitant]
     Dosage: 50 MG, 3/D
     Route: 048
     Dates: start: 20050713
  5. XANAX                                   /USA/ [Concomitant]
     Indication: MENTAL DISORDER
     Dosage: 0.5 MG, DAILY (1/D)
     Route: 048
     Dates: start: 20040213
  6. TERCIAN [Concomitant]
     Indication: MENTAL DISORDER
     Dosage: 25 MG, DAILY (1/D)
     Route: 048
     Dates: start: 20020927
  7. TERCIAN [Concomitant]
     Dosage: 50 MG, DAILY (1/D)
     Route: 048
  8. TERCIAN [Concomitant]
     Dosage: 100 MG, DAILY (1/D)
     Route: 048
  9. TERCIAN [Concomitant]
     Dosage: 100 MG, 2/D
     Route: 048
     Dates: start: 20051221

REACTIONS (2)
  - PLEURAL EFFUSION [None]
  - PLEURISY [None]
